FAERS Safety Report 7220465-X (Version None)
Quarter: 2011Q1

REPORT INFORMATION
  Report Type: 
  Country: None (occurrence: None)
  Receive Date: 20110111
  Receipt Date: 20101222
  Transmission Date: 20110831
  Serious: No
  Sender: FDA-Public Use
  Company Number: US-B.I. PHARMACEUTICALS,INC./RIDGEFIELD-2010-BP-15355BP

PATIENT
  Sex: Female

DRUGS (3)
  1. MEDICATION NOT OTHERWISE SPECIFIED [Concomitant]
  2. ZANTAC 150 [Suspect]
     Dosage: 150 MG
  3. PEPCID [Concomitant]
     Dosage: 80 MG

REACTIONS (1)
  - DRUG INEFFECTIVE [None]
